FAERS Safety Report 5586337-1 (Version None)
Quarter: 2008Q1

REPORT INFORMATION
  Report Type: 
  Country: None (occurrence: None)
  Receive Date: 20080110
  Receipt Date: 20080103
  Transmission Date: 20080703
  Serious: Yes (Other)
  Sender: FDA-Public Use
  Company Number: US-JNJFOC-20070802493

PATIENT
  Sex: Male
  Weight: 61.24 kg

DRUGS (12)
  1. FENTANYL TRANSDERMAL SYSTEM [Suspect]
     Indication: BACK PAIN
     Route: 062
  2. FENTANYL [Suspect]
     Indication: BACK PAIN
     Route: 062
  3. DURAGESIC-100 [Suspect]
     Indication: BACK PAIN
     Route: 062
  4. MULTI-VITAMIN [Concomitant]
     Route: 048
  5. DILTIAZEM [Concomitant]
     Indication: BLOOD PRESSURE
     Route: 048
  6. NAMENDA [Concomitant]
     Indication: DEMENTIA ALZHEIMER'S TYPE
     Route: 048
  7. ARICEPT [Concomitant]
     Indication: DEMENTIA ALZHEIMER'S TYPE
     Route: 048
  8. LIPITOR [Concomitant]
     Route: 048
  9. CELEBREX [Concomitant]
     Indication: PAIN
     Route: 048
  10. ALPRAZOLAM [Concomitant]
     Indication: ANXIETY
     Route: 048
  11. ZOLOFT [Concomitant]
     Indication: DEPRESSION
     Route: 048
  12. OXYCODONE [Concomitant]
     Indication: PAIN
     Route: 048

REACTIONS (4)
  - DRUG ADMINISTERED AT INAPPROPRIATE SITE [None]
  - INFECTION [None]
  - PHARMACEUTICAL PRODUCT COMPLAINT [None]
  - WRONG TECHNIQUE IN DRUG USAGE PROCESS [None]
